FAERS Safety Report 7500826-1 (Version None)
Quarter: 2011Q2

REPORT INFORMATION
  Report Type: 
  Country: None (occurrence: None)
  Receive Date: 20110524
  Receipt Date: 20110512
  Transmission Date: 20111010
  Serious: Yes (Hospitalization, Disabling)
  Sender: FDA-Public Use
  Company Number: A0882986A

PATIENT
  Age: 51 Year
  Sex: Male

DRUGS (1)
  1. AVANDIA [Suspect]
     Indication: DIABETES MELLITUS
     Dosage: 8MG PER DAY
     Route: 048
     Dates: start: 20060201, end: 20060816

REACTIONS (7)
  - CARDIAC FAILURE [None]
  - CORONARY ARTERY DISEASE [None]
  - CARDIAC DISORDER [None]
  - CARDIAC OPERATION [None]
  - CATHETERISATION CARDIAC [None]
  - ASPIRATION PLEURAL CAVITY [None]
  - CARDIAC FAILURE CONGESTIVE [None]
